FAERS Safety Report 19573685 (Version 1)
Quarter: 2021Q3

REPORT INFORMATION
  Report Type: Report from Study
  Country: US (occurrence: US)
  Receive Date: 20210717
  Receipt Date: 20210717
  Transmission Date: 20211014
  Serious: Yes (Hospitalization, Other)
  Sender: FDA-Public Use
  Company Number: US-TAKEDA-2021TUS040561

PATIENT
  Age: 54 Year
  Sex: Female

DRUGS (12)
  1. KEPPRA [Concomitant]
     Active Substance: LEVETIRACETAM
     Indication: HEPATIC ENCEPHALOPATHY
     Dosage: 750 MILLIGRAM, BID
     Route: 048
     Dates: start: 20200902, end: 20200902
  2. TEDUGLUTIDE [Suspect]
     Active Substance: TEDUGLUTIDE
     Dosage: 2.8 MILLIGRAM (0.05MG/KG), 3/WEEK
     Route: 065
     Dates: start: 20150202, end: 201511
  3. TEDUGLUTIDE [Suspect]
     Active Substance: TEDUGLUTIDE
     Dosage: 2.8 MILLIGRAM (0.05MG/KG), 3/WEEK
     Route: 065
     Dates: start: 20150202, end: 201511
  4. LIDOCAINE. [Concomitant]
     Active Substance: LIDOCAINE
     Indication: HEPATIC ENCEPHALOPATHY
     Dosage: UNK, ONE TIME ONLY
     Route: 065
     Dates: start: 20200902, end: 20200902
  5. ECOTRIN [Concomitant]
     Active Substance: ASPIRIN
     Indication: HEPATIC ENCEPHALOPATHY
     Dosage: 81 MILLIGRAM, PRN
     Route: 048
     Dates: start: 20200902, end: 20200902
  6. TEDUGLUTIDE [Suspect]
     Active Substance: TEDUGLUTIDE
     Indication: SHORT-BOWEL SYNDROME
     Dosage: 2.8 MILLIGRAM (0.05MG/KG), QD
     Route: 065
     Dates: start: 20131020, end: 20150202
  7. TEDUGLUTIDE [Suspect]
     Active Substance: TEDUGLUTIDE
     Indication: SHORT-BOWEL SYNDROME
     Dosage: 2.8 MILLIGRAM (0.05MG/KG), QD
     Route: 065
     Dates: start: 20131020, end: 20150202
  8. TEDUGLUTIDE [Suspect]
     Active Substance: TEDUGLUTIDE
     Indication: SHORT-BOWEL SYNDROME
     Dosage: 2.8 MILLIGRAM (0.05MG/KG), QD
     Route: 065
     Dates: start: 20131020, end: 20150202
  9. TEDUGLUTIDE [Suspect]
     Active Substance: TEDUGLUTIDE
     Indication: SHORT-BOWEL SYNDROME
     Dosage: 2.8 MILLIGRAM (0.05MG/KG), QD
     Route: 065
     Dates: start: 20131020, end: 20150202
  10. TEDUGLUTIDE [Suspect]
     Active Substance: TEDUGLUTIDE
     Dosage: 2.8 MILLIGRAM (0.05MG/KG), 3/WEEK
     Route: 065
     Dates: start: 20150202, end: 201511
  11. TEDUGLUTIDE [Suspect]
     Active Substance: TEDUGLUTIDE
     Dosage: 2.8 MILLIGRAM (0.05MG/KG), 3/WEEK
     Route: 065
     Dates: start: 20150202, end: 201511
  12. PROGRAF [Concomitant]
     Active Substance: TACROLIMUS
     Dosage: 2.0 MILLIGRAM, BID
     Route: 048
     Dates: start: 20200902, end: 20200902

REACTIONS (5)
  - Hepatic encephalopathy [Recovered/Resolved]
  - Liver injury [Recovered/Resolved]
  - Fluid overload [Recovered/Resolved]
  - Blood loss anaemia [Recovered/Resolved]
  - Hyperglycaemia [Recovered/Resolved]

NARRATIVE: CASE EVENT DATE: 2020
